FAERS Safety Report 10038702 (Version 1)
Quarter: 2014Q1

REPORT INFORMATION
  Report Type: Spontaneous
  Country: US (occurrence: US)
  Receive Date: 20140326
  Receipt Date: 20140326
  Transmission Date: 20141002
  Serious: Yes (Other)
  Sender: FDA-Public Use
  Company Number: US-BAYER-2014-042632

PATIENT
  Sex: Female

DRUGS (2)
  1. ALEVE CAPLET [Suspect]
     Dosage: UNK
  2. IBUPROFEN [Concomitant]

REACTIONS (4)
  - Haematemesis [None]
  - Drug ineffective [None]
  - Dyspepsia [None]
  - Gastritis [None]
